FAERS Safety Report 17818798 (Version 1)
Quarter: 2020Q2

REPORT INFORMATION
  Report Type: Report from Study
  Country: US (occurrence: US)
  Receive Date: 20200522
  Receipt Date: 20200522
  Transmission Date: 20200714
  Serious: No
  Sender: FDA-Public Use
  Company Number: NVSC2020US141195

PATIENT
  Age: 49 Year
  Sex: Male

DRUGS (1)
  1. MAYZENT [Suspect]
     Active Substance: SIPONIMOD
     Indication: MULTIPLE SCLEROSIS
     Dosage: 2 MG, QD (VIA MOUTH)
     Route: 048
     Dates: start: 20191106

REACTIONS (4)
  - Infection [Not Recovered/Not Resolved]
  - Skin abrasion [Not Recovered/Not Resolved]
  - Visual impairment [Not Recovered/Not Resolved]
  - Altered visual depth perception [Not Recovered/Not Resolved]

NARRATIVE: CASE EVENT DATE: 202004
